FAERS Safety Report 15283994 (Version 1)
Quarter: 2018Q3

REPORT INFORMATION
  Report Type: Report from Study
  Country: MX (occurrence: MX)
  Receive Date: 20180816
  Receipt Date: 20180816
  Transmission Date: 20181010
  Serious: Yes (Other)
  Sender: FDA-Public Use
  Company Number: PHHY2018MX073952

PATIENT
  Sex: Female

DRUGS (1)
  1. COSENTYX [Suspect]
     Active Substance: SECUKINUMAB
     Indication: PSORIATIC ARTHROPATHY
     Dosage: 150 MG, EVERY 8 DAYS DURING 4 WEEKS
     Route: 058

REACTIONS (7)
  - Neck pain [Unknown]
  - Tendonitis [Unknown]
  - Ear pain [Unknown]
  - Pharyngitis [Recovered/Resolved]
  - Decreased immune responsiveness [Unknown]
  - Neuropathy peripheral [Recovered/Resolved]
  - Depression [Unknown]
